FAERS Safety Report 8559455 (Version 3)
Quarter: 2013Q1

REPORT INFORMATION
  Report Type: Spontaneous
  Country: CA (occurrence: CA)
  Receive Date: 20120513
  Receipt Date: 20130304
  Transmission Date: 20140127
  Serious: Yes (Hospitalization, Other)
  Sender: FDA-Public Use
  Company Number: CA-ELI_LILLY_AND_COMPANY-CA201205002145

PATIENT
  Age: 73 Year
  Sex: Female

DRUGS (6)
  1. FORTEO [Suspect]
     Indication: OSTEOPOROSIS
     Dosage: 20 UG, QD
     Route: 058
     Dates: start: 20100511, end: 20110910
  2. VITAMIN B12 [Concomitant]
     Dosage: UNK, MONTHLY (1/M)
  3. VITAMIN D NOS [Concomitant]
     Dosage: UNK, WEEKLY (1/W)
  4. CALCIUM [Concomitant]
  5. TYLENOL /00020001/ [Concomitant]
  6. INSULIN [Concomitant]

REACTIONS (5)
  - Abdominal pain [Recovered/Resolved with Sequelae]
  - Adenocarcinoma of colon [Recovered/Resolved with Sequelae]
  - Gastroenteritis radiation [Recovered/Resolved with Sequelae]
  - Abdominal pain [Recovered/Resolved with Sequelae]
  - Peridiverticulitis [Unknown]
